FAERS Safety Report 12351537 (Version 2)
Quarter: 2016Q2

REPORT INFORMATION
  Report Type: Spontaneous
  Country: IR (occurrence: IR)
  Receive Date: 20160510
  Receipt Date: 20160623
  Transmission Date: 20160815
  Serious: Yes (Other)
  Sender: FDA-Public Use
  Company Number: PHHY2016IR061518

PATIENT
  Age: 34 Year
  Sex: Female

DRUGS (1)
  1. MARELA [Suspect]
     Active Substance: FINGOLIMOD
     Indication: MULTIPLE SCLEROSIS
     Dosage: UNK UNK, QD
     Route: 048

REACTIONS (6)
  - Visual impairment [Unknown]
  - Emotional distress [Unknown]
  - Generalised tonic-clonic seizure [Recovering/Resolving]
  - Muscle rigidity [Unknown]
  - Depressed level of consciousness [Recovering/Resolving]
  - Confusional state [Unknown]
